FAERS Safety Report 21132797 (Version 2)
Quarter: 2022Q3

REPORT INFORMATION
  Report Type: Report from Study
  Country: MX (occurrence: MX)
  Receive Date: 20220726
  Receipt Date: 20220727
  Transmission Date: 20221027
  Serious: Yes (Death, Other)
  Sender: FDA-Public Use
  Company Number: MX-NOVARTISPH-NVSC2022MX168568

PATIENT
  Sex: Female
  Weight: 45 kg

DRUGS (1)
  1. FEMARA [Suspect]
     Active Substance: LETROZOLE
     Indication: Product used for unknown indication
     Dosage: 2.5 MG, QD (PILL)
     Route: 048
     Dates: start: 20200131

REACTIONS (2)
  - Pneumonia [Fatal]
  - Neoplasm [Unknown]
